FAERS Safety Report 23566371 (Version 1)
Quarter: 2024Q1

REPORT INFORMATION
  Report Type: Spontaneous
  Country: US (occurrence: US)
  Receive Date: 20240226
  Receipt Date: 20240226
  Transmission Date: 20240410
  Serious: No
  Sender: FDA-Public Use
  Company Number: US-BAYER-2024A026185

PATIENT

DRUGS (1)
  1. ALEVE [Suspect]
     Active Substance: NAPROXEN SODIUM
     Dosage: NOT AVAILABLE

REACTIONS (3)
  - Therapeutic product effect delayed [Unknown]
  - Therapeutic product effect decreased [None]
  - Extra dose administered [None]
